FAERS Safety Report 23480022 (Version 1)
Quarter: 2024Q1

REPORT INFORMATION
  Report Type: Spontaneous
  Country: US (occurrence: US)
  Receive Date: 20240205
  Receipt Date: 20240205
  Transmission Date: 20240409
  Serious: No
  Sender: FDA-Public Use
  Company Number: US-UCBSA-2023056238

PATIENT
  Age: 33 Year
  Sex: Female

DRUGS (6)
  1. LEVETIRACETAM [Suspect]
     Active Substance: LEVETIRACETAM
     Indication: MELAS syndrome
     Dosage: UNK
  2. LEVETIRACETAM [Suspect]
     Active Substance: LEVETIRACETAM
     Indication: Off label use
  3. ARGININE [Concomitant]
     Active Substance: ARGININE
     Indication: MELAS syndrome
     Dosage: UNK
  4. COENZYME Q10 [Concomitant]
     Active Substance: DIETARY SUPPLEMENT\UBIDECARENONE
     Indication: MELAS syndrome
     Dosage: UNK
  5. PHENYTOIN [Concomitant]
     Active Substance: PHENYTOIN
     Indication: MELAS syndrome
     Dosage: UNK
  6. HUMAN IMMUNOGLOBULIN G [Concomitant]
     Active Substance: HUMAN IMMUNOGLOBULIN G
     Indication: MELAS syndrome
     Dosage: UNK

REACTIONS (1)
  - No adverse event [Unknown]
